FAERS Safety Report 5594666-0 (Version None)
Quarter: 2007Q4

REPORT INFORMATION
  Report Type: 
  Country: None (occurrence: None)
  Receive Date: 20071217
  Receipt Date: 20070925
  Transmission Date: 20080405
  Serious: Yes (Other)
  Sender: FDA-Public Use
  Company Number: 2007VX002397

PATIENT
  Sex: Female

DRUGS (1)
  1. CESAMET [Suspect]

REACTIONS (1)
  - ARRHYTHMIA [None]
